FAERS Safety Report 4774807-5 (Version None)
Quarter: 2005Q3

REPORT INFORMATION
  Report Type: 
  Country: None (occurrence: None)
  Receive Date: 20050919
  Receipt Date: 20050908
  Transmission Date: 20060218
  Serious: Yes (Life-Threatening, Hospitalization, Other)
  Sender: FDA-Public Use
  Company Number: 2005-09-0618

PATIENT
  Age: 65 Year
  Sex: Male

DRUGS (6)
  1. EULEXIN [Suspect]
     Indication: PROSTATE CANCER
     Dosage: 250 MG TID ORAL
     Route: 048
     Dates: start: 19940609
  2. LUPRON [Suspect]
     Indication: PROSTATE CANCER
     Dosage: 7.5 MG INTRAMUSULAR
     Route: 030
     Dates: start: 19940615
  3. NIACIN [Concomitant]
  4. CALCIUM GLUCONATE [Concomitant]
  5. LOPRESSOR [Concomitant]
  6. METOPROLOL [Concomitant]

REACTIONS (10)
  - ANAEMIA [None]
  - ARTHRALGIA [None]
  - DISSEMINATED INTRAVASCULAR COAGULATION [None]
  - HAEMATOMA [None]
  - MICROANGIOPATHY [None]
  - PAIN [None]
  - POST PROCEDURAL COMPLICATION [None]
  - POST PROCEDURAL HAEMORRHAGE [None]
  - PROSTATIC SPECIFIC ANTIGEN INCREASED [None]
  - RED BLOOD CELL SCHISTOCYTES PRESENT [None]
